FAERS Safety Report 11455349 (Version 1)
Quarter: 2015Q3

REPORT INFORMATION
  Report Type: Spontaneous
  Country: US (occurrence: US)
  Receive Date: 20150903
  Receipt Date: 20150903
  Transmission Date: 20151125
  Serious: Yes (Hospitalization)
  Sender: FDA-Public Use
  Company Number: US-LPDUSPRD-20150656

PATIENT
  Age: 40 Year
  Sex: Female
  Weight: 54 kg

DRUGS (5)
  1. EPOGEN [Concomitant]
     Active Substance: ERYTHROPOIETIN
     Route: 065
  2. 2008T HEMODIALYSIS MACHINE [Suspect]
     Active Substance: DEVICE
  3. VENOFER [Suspect]
     Active Substance: IRON SUCROSE
     Dosage: 50 MG ONCE PER WEEK
     Route: 040
     Dates: start: 20150731
  4. 160NRE OPTIFLUX DIALYZER [Suspect]
     Active Substance: DEVICE
  5. VITAMIN D [Concomitant]
     Active Substance: CHOLECALCIFEROL
     Route: 048

REACTIONS (3)
  - Loss of consciousness [Recovered/Resolved]
  - Anaemia [Recovered/Resolved]
  - Haemorrhage [Recovered/Resolved]

NARRATIVE: CASE EVENT DATE: 20150814
